FAERS Safety Report 5488779-1 (Version None)
Quarter: 2007Q4

REPORT INFORMATION
  Report Type: 
  Country: None (occurrence: None)
  Receive Date: 20071017
  Receipt Date: 20071005
  Transmission Date: 20080405
  Serious: Yes (Other)
  Sender: FDA-Public Use
  Company Number: US-PFIZER INC-2007085035

PATIENT
  Sex: Female

DRUGS (6)
  1. CHANTIX [Suspect]
     Indication: EX-SMOKER
     Route: 048
  2. KEPPRA [Concomitant]
     Route: 048
  3. TEGRETOL [Concomitant]
     Route: 048
  4. GLIPIZIDE [Concomitant]
     Route: 048
  5. CORGARD [Concomitant]
     Route: 048
  6. DILTIAZEM [Concomitant]
     Route: 048

REACTIONS (2)
  - BLOOD GLUCOSE INCREASED [None]
  - VISUAL DISTURBANCE [None]
